FAERS Safety Report 18609209 (Version 1)
Quarter: 2020Q4

REPORT INFORMATION
  Report Type: Spontaneous
  Country: US (occurrence: US)
  Receive Date: 20201214
  Receipt Date: 20201214
  Transmission Date: 20210114
  Serious: No
  Sender: FDA-Public Use
  Company Number: US-RECORDATI RARE DISEASES-2102930

PATIENT
  Age: 24 Year
  Sex: Male

DRUGS (1)
  1. SIGNIFOR LAR [Suspect]
     Active Substance: PASIREOTIDE PAMOATE
     Indication: ACROMEGALY
     Dates: start: 20200410

REACTIONS (10)
  - Headache [Unknown]
  - Back pain [Unknown]
  - Nausea [Unknown]
  - Vomiting [Unknown]
  - Hot flush [Unknown]
  - Paraesthesia [Unknown]
  - Fatigue [Unknown]
  - Hypoaesthesia [Unknown]
  - Diarrhoea [Unknown]
  - Pain [Unknown]

NARRATIVE: CASE EVENT DATE: 2020
